FAERS Safety Report 4786446-0 (Version None)
Quarter: 2005Q4

REPORT INFORMATION
  Report Type: 
  Country: None (occurrence: None)
  Receive Date: 20051003
  Receipt Date: 19980522
  Transmission Date: 20060501
  Serious: Yes (Other)
  Sender: FDA-Public Use
  Company Number: US-MERCK-98051518

PATIENT
  Age: 76 Year
  Sex: Male

DRUGS (1)
  1. ZOCOR [Suspect]
     Route: 048
     Dates: start: 19970101, end: 19980101

REACTIONS (2)
  - MYALGIA [None]
  - MYOCARDIAL INFARCTION [None]
